FAERS Safety Report 4339972-2 (Version None)
Quarter: 2004Q2

REPORT INFORMATION
  Report Type: 
  Country: None (occurrence: None)
  Receive Date: 20040416
  Receipt Date: 20031201
  Transmission Date: 20050107
  Serious: Yes (Other)
  Sender: FDA-Public Use
  Company Number: PHHO2003AR15709

PATIENT
  Age: 60 Year
  Sex: Male

DRUGS (4)
  1. ZELMAC / HTF 919A [Suspect]
     Indication: IRRITABLE BOWEL SYNDROME
     Dosage: 6 MG, QD
     Dates: end: 20031201
  2. ATENOLOL [Concomitant]
     Dosage: 25 MG, QD
  3. FLUOXETINA [Concomitant]
     Dosage: 20 MG, QD
  4. ASPIRIN [Concomitant]
     Dosage: 100 MG, QD

REACTIONS (2)
  - HEADACHE [None]
  - HYPERTENSION [None]
